FAERS Safety Report 9003962 (Version 2)
Quarter: 2013Q1

REPORT INFORMATION
  Report Type: Spontaneous
  Country: CA (occurrence: CA)
  Receive Date: 20130109
  Receipt Date: 20130305
  Transmission Date: 20140127
  Serious: Yes (Hospitalization)
  Sender: FDA-Public Use
  Company Number: CA-AMGEN-CANSP2012084157

PATIENT
  Age: 75 Year
  Sex: Female
  Weight: 65.91 kg

DRUGS (1)
  1. PROLIA [Suspect]
     Indication: OSTEOPOROSIS
     Dosage: 60 MG, UNK
     Dates: start: 20120718

REACTIONS (3)
  - Abdominal hernia [Unknown]
  - Localised infection [Unknown]
  - Postoperative wound infection [Unknown]
